FAERS Safety Report 21208794 (Version 1)
Quarter: 2022Q3

REPORT INFORMATION
  Report Type: Spontaneous
  Country: US (occurrence: US)
  Receive Date: 20220812
  Receipt Date: 20220812
  Transmission Date: 20221027
  Serious: No
  Sender: FDA-Public Use
  Company Number: US-SA-SAC20220809000402

PATIENT
  Age: 49 Year
  Sex: Female

DRUGS (7)
  1. DUPIXENT [Suspect]
     Active Substance: DUPILUMAB
     Indication: Dermatitis atopic
     Dosage: UNK UNK, QOW
     Route: 058
     Dates: start: 20200705
  2. HYDROCODONE [Concomitant]
     Active Substance: HYDROCODONE
  3. OXYCODONE [Concomitant]
     Active Substance: OXYCODONE
  4. ASPIRIN [Concomitant]
     Active Substance: ASPIRIN
  5. TRIAMCINOLONE [Concomitant]
     Active Substance: TRIAMCINOLONE
  6. ALPRAZOLAM [Concomitant]
     Active Substance: ALPRAZOLAM
  7. CLARITIN [Concomitant]
     Active Substance: LORATADINE

REACTIONS (1)
  - Dermatitis atopic [Unknown]
